FAERS Safety Report 10619151 (Version 1)
Quarter: 2014Q4

REPORT INFORMATION
  Report Type: Spontaneous
  Country: CA (occurrence: CA)
  Receive Date: 20141202
  Receipt Date: 20141202
  Transmission Date: 20150529
  Serious: Yes (Other)
  Sender: FDA-Public Use
  Company Number: CA-009507513-1411CAN012173

PATIENT
  Age: 70 Year
  Sex: Female
  Weight: 92 kg

DRUGS (6)
  1. HYZAAR [Suspect]
     Active Substance: HYDROCHLOROTHIAZIDE\LOSARTAN POTASSIUM
     Dosage: 12.5 MG, 1 EVERY 1 DAY(S)
     Route: 065
  2. ATORVASTATIN CALCIUM. [Suspect]
     Active Substance: ATORVASTATIN CALCIUM
     Dosage: 80,0 MG, 1 EVERY 1 DAY(S)
     Route: 065
  3. NADOLOL. [Suspect]
     Active Substance: NADOLOL
     Dosage: 40.0 MG, 1 EVERY 1 DAY(S)
     Route: 065
  4. ASPIRIN. [Suspect]
     Active Substance: ASPIRIN
     Dosage: 325.0 MG, 1 EVERY 1 DAY(S)
     Route: 065
  5. ERLOTINIB HYDROCHLORIDE [Suspect]
     Active Substance: ERLOTINIB HYDROCHLORIDE
     Dosage: 150.0 MG, 1 EVERY 1 DAY(S)
     Route: 048
  6. AMLODIPINE BESYLATE. [Suspect]
     Active Substance: AMLODIPINE BESYLATE
     Dosage: 5.0 MG, 1 EVERY 1 DAY(S)
     Route: 065

REACTIONS (6)
  - Anaemia [Recovered/Resolved]
  - Large intestine polyp [Recovered/Resolved]
  - Diverticulum intestinal [Recovered/Resolved]
  - Diverticulum [Recovered/Resolved]
  - Colon adenoma [Recovered/Resolved]
  - Gastrointestinal haemorrhage [Recovered/Resolved]
